FAERS Safety Report 24035317 (Version 1)
Quarter: 2024Q3

REPORT INFORMATION
  Report Type: Spontaneous
  Country: US (occurrence: US)
  Receive Date: 20240701
  Receipt Date: 20240701
  Transmission Date: 20241016
  Serious: Yes (Other)
  Sender: PFIZER
  Company Number: US-PFIZER INC-PV202400084249

PATIENT
  Age: 21 Year
  Sex: Male

DRUGS (1)
  1. OXBRYTA [Suspect]
     Active Substance: VOXELOTOR
     Indication: Sickle cell disease
     Route: 065

REACTIONS (5)
  - Pulmonary hypertension [Unknown]
  - Sickle cell anaemia with crisis [Unknown]
  - Hypersplenism [Unknown]
  - Pain [Unknown]
  - Abdominal symptom [Unknown]
